FAERS Safety Report 5342693-0 (Version None)
Quarter: 2007Q2

REPORT INFORMATION
  Report Type: 
  Country: None (occurrence: None)
  Receive Date: 20070601
  Receipt Date: 20070124
  Transmission Date: 20071010
  Serious: No
  Sender: FDA-Public Use
  Company Number: A0636883A

PATIENT
  Sex: Female

DRUGS (2)
  1. AMOXICILLIN AND CLAVULANATE POTASSIUM [Suspect]
     Indication: DRUG USE FOR UNKNOWN INDICATION
     Route: 048
  2. NO CONCURRENT MEDICATION [Concomitant]

REACTIONS (2)
  - NAUSEA [None]
  - VOMITING [None]
